FAERS Safety Report 16272609 (Version 2)
Quarter: 2019Q2

REPORT INFORMATION
  Report Type: Report from Study
  Country: US (occurrence: US)
  Receive Date: 20190506
  Receipt Date: 20190617
  Transmission Date: 20190711
  Serious: No
  Sender: FDA-Public Use
  Company Number: US-THERATECHNOLOGIES, INC.-TH-2019-00067

PATIENT

DRUGS (4)
  1. EGRIFTA [Suspect]
     Active Substance: TESAMORELIN
     Indication: RHEUMATOID ARTHRITIS
     Dosage: 1 MG MILLIGRAM(S), DAILY DOSE
     Route: 058
     Dates: start: 20180327
  2. NIACIN. [Concomitant]
     Active Substance: NIACIN
     Dosage: 500 MG MILLIGRAM(S), UNK
     Dates: start: 20181213, end: 20190311
  3. LISINOPRIL. [Concomitant]
     Active Substance: LISINOPRIL
     Dosage: 20 MG MILLIGRAM(S), UNK
     Dates: start: 20181217, end: 20190317
  4. HYDROXYCHLOROQUINE [Concomitant]
     Active Substance: HYDROXYCHLOROQUINE
     Dosage: 200 MG MILLIGRAM(S), UNK
     Dates: start: 20181105

REACTIONS (5)
  - Off label use [Unknown]
  - Weight decreased [Not Recovered/Not Resolved]
  - Rheumatoid arthritis [Not Recovered/Not Resolved]
  - Drug ineffective [Unknown]
  - Product dose omission [Not Recovered/Not Resolved]

NARRATIVE: CASE EVENT DATE: 201812
